FAERS Safety Report 4436476-3 (Version None)
Quarter: 2004Q3

REPORT INFORMATION
  Report Type: 
  Country: None (occurrence: None)
  Receive Date: 20040830
  Receipt Date: 20040525
  Transmission Date: 20050211
  Serious: No
  Sender: FDA-Public Use
  Company Number: US-BRISTOL-MYERS SQUIBB COMPANY-12595955

PATIENT
  Sex: Male

DRUGS (1)
  1. ABILIFY [Suspect]
     Indication: SCHIZOPHRENIA
     Dosage: 15 MG STARTED APPROX MAR-04; THEN REDUCED TO 2.5 MG/DAY (NO DATE)
     Route: 048
     Dates: start: 20040301

REACTIONS (1)
  - EXTRAPYRAMIDAL DISORDER [None]
